FAERS Safety Report 5516032-6 (Version None)
Quarter: 2007Q4

REPORT INFORMATION
  Report Type: 
  Country: None (occurrence: None)
  Receive Date: 20071114
  Receipt Date: 20061117
  Transmission Date: 20080405
  Serious: No
  Sender: FDA-Public Use
  Company Number: A0627806A

PATIENT
  Age: 56 Year
  Sex: Male

DRUGS (5)
  1. COMMIT [Suspect]
     Dates: start: 20061116
  2. NICORETTE [Suspect]
  3. NICODERM CQ [Suspect]
  4. NICORETTE [Suspect]
  5. LOBELIA [Concomitant]

REACTIONS (9)
  - ABNORMAL DREAMS [None]
  - FATIGUE [None]
  - HICCUPS [None]
  - INSOMNIA [None]
  - IRRITABILITY [None]
  - MOUTH ULCERATION [None]
  - NIGHTMARE [None]
  - STOMATITIS [None]
  - TACHYCARDIA [None]
